FAERS Safety Report 7374172-3 (Version None)
Quarter: 2011Q1

REPORT INFORMATION
  Report Type: 
  Country: None (occurrence: None)
  Receive Date: 20110325
  Receipt Date: 20110317
  Transmission Date: 20110831
  Serious: Yes (Life-Threatening, Other)
  Sender: FDA-Public Use
  Company Number: JP-JNJFOC-20110205814

PATIENT
  Sex: Female
  Weight: 53 kg

DRUGS (22)
  1. DOXORUBICIN HCL [Suspect]
     Dosage: CYCLE 10
     Route: 042
  2. MAGMITT [Concomitant]
     Indication: CONSTIPATION
     Route: 048
  3. DOXORUBICIN HCL [Suspect]
     Indication: OVARIAN CANCER RECURRENT
     Dosage: CYCLE 6
     Route: 042
  4. LOXONIN [Concomitant]
     Route: 048
  5. LENDORMIN [Concomitant]
     Indication: INSOMNIA
     Route: 048
  6. MOHRUS TAPE [Concomitant]
     Indication: BACK PAIN
     Route: 061
  7. DOXORUBICIN HCL [Suspect]
     Dosage: CYCLE 4
     Route: 042
  8. DOXORUBICIN HCL [Suspect]
     Dosage: CYCLE 1
     Route: 042
  9. DOXORUBICIN HCL [Suspect]
     Dosage: CYCLE 9
     Route: 042
  10. PRIMPERAN TAB [Concomitant]
     Indication: NAUSEA
     Route: 048
  11. EMEND [Concomitant]
     Route: 048
  12. DECADRON [Concomitant]
     Indication: PROPHYLAXIS
     Route: 048
  13. SEISHOKU [Concomitant]
     Route: 042
  14. DOXORUBICIN HCL [Suspect]
     Dosage: CYCLE 3
     Route: 042
  15. DOXORUBICIN HCL [Suspect]
     Dosage: CYCLE 5
     Route: 042
  16. DOXORUBICIN HCL [Suspect]
     Dosage: CYCLE 7
     Route: 042
  17. SELBEX [Concomitant]
     Route: 048
  18. DOXORUBICIN HCL [Suspect]
     Dosage: CYCLE 2
     Route: 042
  19. EMEND [Concomitant]
     Indication: PROPHYLAXIS
     Route: 048
  20. DOXORUBICIN HCL [Suspect]
     Dosage: CYCLE 8
     Route: 042
  21. PURSENNID [Concomitant]
     Indication: CONSTIPATION
     Route: 048
  22. CATLEP [Concomitant]
     Indication: BACK PAIN
     Route: 061

REACTIONS (2)
  - INTESTINAL OBSTRUCTION [None]
  - LEUKOPENIA [None]
